FAERS Safety Report 21802362 (Version 1)
Quarter: 2022Q4

REPORT INFORMATION
  Report Type: Report from Study
  Country: US (occurrence: US)
  Receive Date: 20221230
  Receipt Date: 20221230
  Transmission Date: 20230113
  Serious: No
  Sender: FDA-Public Use
  Company Number: US-ACORDA-ACO_173329_2022

PATIENT
  Age: 71 Year
  Sex: Male

DRUGS (4)
  1. INBRIJA [Suspect]
     Active Substance: LEVODOPA
     Indication: Parkinson^s disease
     Dosage: 2 CAPSULES (84 MG), PRN (NOT TO EXCEED 5 DOSES A DAY)
     Dates: start: 20220820
  2. INBRIJA [Suspect]
     Active Substance: LEVODOPA
     Indication: On and off phenomenon
     Dosage: 2 CAPSULES (84 MG), PRN (NOT TO EXCEED 5 DOSES A DAY)
     Dates: start: 20220820
  3. INBRIJA [Suspect]
     Active Substance: LEVODOPA
     Dosage: 2 CAPSULES (84 MG), PRN (NOT TO EXCEED 5 DOSES A DAY)
     Dates: start: 20220820
  4. RYTARY [Concomitant]
     Active Substance: CARBIDOPA\LEVODOPA
     Indication: Product used for unknown indication
     Dosage: 23.75/95 MG, 3 CAPSULES 4X A DAY
     Route: 065

REACTIONS (3)
  - Drug ineffective [Unknown]
  - Skin laceration [Recovered/Resolved]
  - Fall [Recovered/Resolved]

NARRATIVE: CASE EVENT DATE: 20220820
